FAERS Safety Report 5584637-2 (Version None)
Quarter: 2008Q1

REPORT INFORMATION
  Report Type: 
  Country: None (occurrence: None)
  Receive Date: 20080108
  Receipt Date: 20071231
  Transmission Date: 20080703
  Serious: Yes (Other)
  Sender: FDA-Public Use
  Company Number: US-PFIZER INC-2007086524

PATIENT
  Sex: Female
  Weight: 81.818 kg

DRUGS (9)
  1. LIPITOR [Suspect]
     Indication: BLOOD CHOLESTEROL INCREASED
     Route: 048
     Dates: start: 20071008, end: 20071014
  2. NORVASC [Suspect]
     Indication: HYPERTENSION
     Route: 048
  3. LODINE [Concomitant]
  4. PROTONIX [Concomitant]
  5. PREDNISONE TAB [Concomitant]
     Dosage: DAILY DOSE:2.5MG
  6. VITAMIN CAP [Concomitant]
  7. FISH OIL [Concomitant]
  8. OCUVITE [Concomitant]
  9. ASCORBIC ACID [Concomitant]

REACTIONS (6)
  - BLOOD PRESSURE INCREASED [None]
  - CHEST PAIN [None]
  - DISTURBANCE IN ATTENTION [None]
  - FEELING ABNORMAL [None]
  - IRRITABILITY [None]
  - SPEECH DISORDER [None]
